FAERS Safety Report 19936012 (Version 4)
Quarter: 2021Q4

REPORT INFORMATION
  Report Type: Spontaneous
  Country: IE (occurrence: IE)
  Receive Date: 20211009
  Receipt Date: 20211111
  Transmission Date: 20220304
  Serious: Yes (Hospitalization)
  Sender: FDA-Public Use
  Company Number: IE-JNJFOC-20210959355

PATIENT
  Age: 40 Year
  Sex: Male

DRUGS (4)
  1. FENTANYL [Suspect]
     Active Substance: FENTANYL
     Indication: Pain
     Dosage: DUROGESIC PATCH MATRIX 12.00 MCG/HR
     Route: 062
  2. FENTANYL [Suspect]
     Active Substance: FENTANYL
  3. FENTANYL [Suspect]
     Active Substance: FENTANYL
  4. FENTANYL [Suspect]
     Active Substance: FENTANYL

REACTIONS (4)
  - Hospitalisation [Unknown]
  - Hyperhidrosis [Unknown]
  - Product adhesion issue [Unknown]
  - Wrong technique in product usage process [Unknown]

NARRATIVE: CASE EVENT DATE: 20210921
